FAERS Safety Report 22590742 (Version 1)
Quarter: 2023Q2

REPORT INFORMATION
  Report Type: Report from Study
  Country: US (occurrence: US)
  Receive Date: 20230612
  Receipt Date: 20230612
  Transmission Date: 20230722
  Serious: Yes (Other)
  Sender: FDA-Public Use
  Company Number: US-002147023-NVSC2023US128771

PATIENT
  Sex: Male

DRUGS (2)
  1. LEQVIO [Suspect]
     Active Substance: INCLISIRAN SODIUM
     Indication: Product used for unknown indication
     Dosage: FIRST INJECTION
     Route: 058
     Dates: start: 20230301
  2. LEQVIO [Suspect]
     Active Substance: INCLISIRAN SODIUM
     Dosage: SECOND INJECTION
     Route: 058
     Dates: start: 20230531

REACTIONS (2)
  - Neuropathy peripheral [Not Recovered/Not Resolved]
  - Pain in extremity [Not Recovered/Not Resolved]
